FAERS Safety Report 9686678 (Version 2)
Quarter: 2013Q4

REPORT INFORMATION
  Report Type: Spontaneous
  Country: US (occurrence: US)
  Receive Date: 20131113
  Receipt Date: 20131120
  Transmission Date: 20140711
  Serious: Yes (Hospitalization)
  Sender: FDA-Public Use
  Company Number: US-PFIZER INC-2013319488

PATIENT
  Age: 69 Year
  Sex: Female
  Weight: 81.63 kg

DRUGS (2)
  1. LIPITOR [Suspect]
     Dosage: UNK
  2. RAMIPRIL [Suspect]
     Indication: HYPERTENSION
     Dosage: UNK

REACTIONS (3)
  - Hypersensitivity [Unknown]
  - Swollen tongue [Unknown]
  - Throat tightness [Unknown]
